FAERS Safety Report 12174096 (Version 1)
Quarter: 2016Q1

REPORT INFORMATION
  Report Type: Spontaneous
  Country: US (occurrence: None)
  Receive Date: 20160311
  Receipt Date: 20160311
  Transmission Date: 20160526
  Serious: Yes (Other)
  Sender: FDA-Public Use
  Company Number: None

PATIENT
  Age: 65 Year
  Sex: Female

DRUGS (9)
  1. METHYLPHENIDATE (RITALIN) [Concomitant]
  2. POVIDONE-LODINE (BETADINE) [Concomitant]
  3. FLUOXETINE (PROZAC) [Concomitant]
  4. PEPCID [Concomitant]
     Active Substance: FAMOTIDINE
  5. CHOLECALCIFEROL [Concomitant]
     Active Substance: CHOLECALCIFEROL
  6. AMPYRA [Suspect]
     Active Substance: DALFAMPRIDINE
     Indication: MULTIPLE SCLEROSIS
     Route: 048
  7. DIAZEPAM (VALIUM) 5 MG [Concomitant]
     Active Substance: DIAZEPAM
  8. LIORESAL [Concomitant]
     Active Substance: BACLOFEN
  9. VITAMIN D3 (VITAMIN D3) [Concomitant]

REACTIONS (1)
  - Escherichia urinary tract infection [None]

NARRATIVE: CASE EVENT DATE: 20160226
